FAERS Safety Report 11709123 (Version 1)
Quarter: 2015Q4

REPORT INFORMATION
  Report Type: Spontaneous
  Country: US (occurrence: US)
  Receive Date: 20151104
  Receipt Date: 20151104
  Transmission Date: 20160304
  Serious: No
  Sender: FDA-Public Use
  Company Number: US-ELI_LILLY_AND_COMPANY-US201108007744

PATIENT
  Age: 85 Year
  Sex: Female

DRUGS (1)
  1. FORTEO [Suspect]
     Active Substance: TERIPARATIDE
     Indication: ARTHRITIS
     Dosage: 20 UG, QD
     Dates: start: 20110808, end: 20110823

REACTIONS (5)
  - Nausea [Unknown]
  - Malaise [Unknown]
  - Off label use [Unknown]
  - Intentional product misuse [Unknown]
  - Pain [Unknown]

NARRATIVE: CASE EVENT DATE: 20110822
